FAERS Safety Report 6881122-2 (Version None)
Quarter: 2010Q3

REPORT INFORMATION
  Report Type: 
  Country: None (occurrence: None)
  Receive Date: 20100727
  Receipt Date: 20100716
  Transmission Date: 20110219
  Serious: No
  Sender: FDA-Public Use
  Company Number: 2009BI026837

PATIENT
  Sex: Female

DRUGS (2)
  1. TYSABRI [Suspect]
     Indication: MULTIPLE SCLEROSIS
     Route: 042
     Dates: start: 20070220
  2. BETASERON [Concomitant]
     Indication: MULTIPLE SCLEROSIS

REACTIONS (7)
  - ANAPHYLACTIC REACTION [None]
  - FATIGUE [None]
  - LIP SWELLING [None]
  - OESOPHAGITIS [None]
  - SWELLING FACE [None]
  - URINARY TRACT INFECTION [None]
  - URTICARIA [None]
